FAERS Safety Report 5613062-0 (Version None)
Quarter: 2008Q1

REPORT INFORMATION
  Report Type: 
  Country: None (occurrence: None)
  Receive Date: 20080204
  Receipt Date: 20080123
  Transmission Date: 20080703
  Serious: Yes (Hospitalization)
  Sender: FDA-Public Use
  Company Number: US-PFIZER INC-2008007782

PATIENT
  Sex: Male
  Weight: 3.773 kg

DRUGS (3)
  1. ZITHROMAX [Suspect]
     Indication: PNEUMONIA
     Route: 042
     Dates: start: 20080119, end: 20080120
  2. ANTIBIOTICS [Concomitant]
  3. ZANTAC [Concomitant]

REACTIONS (1)
  - OVERDOSE [None]
